FAERS Safety Report 22648846 (Version 2)
Quarter: 2023Q2

REPORT INFORMATION
  Report Type: Report from Study
  Country: US (occurrence: US)
  Receive Date: 20230628
  Receipt Date: 20230630
  Transmission Date: 20230722
  Serious: No
  Sender: FDA-Public Use
  Company Number: US-ABBVIE-5307022

PATIENT
  Sex: Female
  Weight: 51.255 kg

DRUGS (8)
  1. SKYRIZI [Suspect]
     Active Substance: RISANKIZUMAB-RZAA
     Indication: Crohn^s disease
     Dosage: FORM STRENGTH ; 360 MILLIGRAM
     Route: 058
     Dates: start: 20230627
  2. SKYRIZI [Suspect]
     Active Substance: RISANKIZUMAB-RZAA
     Indication: Crohn^s disease
     Dosage: FORM STRENGTH : 600 MILLIGRAM
     Route: 042
     Dates: start: 20230321, end: 20230517
  3. LEVOTHYROXINE [Concomitant]
     Active Substance: LEVOTHYROXINE
     Indication: Hypothyroidism
  4. PROGESTERONE [Concomitant]
     Active Substance: PROGESTERONE
     Indication: Osteoporosis
  5. PROGESTERONE DCI [Concomitant]
     Indication: Osteoporosis
  6. OMEPRAZOLE [Concomitant]
     Active Substance: OMEPRAZOLE
     Indication: Gastrooesophageal reflux disease
     Dosage: TWICE A DAY
  7. OMEPRAZOLE [Concomitant]
     Active Substance: OMEPRAZOLE
     Indication: Gastrooesophageal reflux disease
     Route: 065
  8. ESTRADIOL [Concomitant]
     Active Substance: ESTRADIOL
     Indication: Osteoporosis

REACTIONS (5)
  - Dizziness [Recovered/Resolved]
  - Presyncope [Unknown]
  - Hyperhidrosis [Unknown]
  - Device issue [Not Recovered/Not Resolved]
  - Feeling cold [Unknown]

NARRATIVE: CASE EVENT DATE: 20230101
